FAERS Safety Report 8365818-1 (Version None)
Quarter: 2012Q2

REPORT INFORMATION
  Report Type: 
  Country: None (occurrence: None)
  Receive Date: 20120517
  Receipt Date: 20120509
  Transmission Date: 20120825
  Serious: Yes (Hospitalization)
  Sender: FDA-Public Use
  Company Number: US-BRISTOL-MYERS SQUIBB COMPANY-16386385

PATIENT
  Age: 79 Year
  Sex: Female

DRUGS (11)
  1. HUMEX [Concomitant]
     Dosage: SUPPLEMENT
     Dates: start: 20120126
  2. IXABEPILONE [Suspect]
     Indication: ENDOMETRIAL CANCER
     Dosage: INTER ON 19JAN12
     Route: 042
     Dates: start: 20111206
  3. MIRALAX [Concomitant]
     Dosage: 1DF=1 CAPFULL
     Dates: start: 20120202
  4. PROTONIX [Concomitant]
     Route: 048
  5. FUROSEMIDE [Suspect]
     Indication: CARDIAC FAILURE CONGESTIVE
  6. ASPIRIN [Concomitant]
     Route: 048
  7. SYNTHROID [Concomitant]
     Route: 048
  8. IMIPRAMINE [Concomitant]
     Route: 048
  9. COLACE [Concomitant]
     Dosage: 1DF=2 UNITS NOS
     Route: 048
     Dates: start: 20120126
  10. TOPROL-XL [Concomitant]
     Route: 048
  11. VITAMIN B-12 [Concomitant]
     Dosage: INJ
     Dates: start: 20120202

REACTIONS (4)
  - CARDIAC FAILURE CONGESTIVE [None]
  - ACUTE MYOCARDIAL INFARCTION [None]
  - HYPOKALAEMIA [None]
  - ANAEMIA [None]
